FAERS Safety Report 14559636 (Version 2)
Quarter: 2018Q1

REPORT INFORMATION
  Report Type: Spontaneous
  Country: CZ (occurrence: CZ)
  Receive Date: 20180221
  Receipt Date: 20180315
  Transmission Date: 20180509
  Serious: Yes (Other)
  Sender: FDA-Public Use
  Company Number: CZ-IPSEN BIOPHARMACEUTICALS, INC.-2018-02874

PATIENT
  Age: 58 Year
  Sex: Male

DRUGS (11)
  1. AFLIBERCEPT [Suspect]
     Active Substance: AFLIBERCEPT
     Indication: COLORECTAL CANCER METASTATIC
     Route: 041
     Dates: start: 20141110
  2. IRINOTECAN LIPOSOME [Suspect]
     Active Substance: IRINOTECAN
     Indication: OFF LABEL USE
  3. 5-FU [Suspect]
     Active Substance: FLUOROURACIL
     Route: 042
     Dates: start: 20141110
  4. LEUCOVORIN. [Suspect]
     Active Substance: LEUCOVORIN
     Indication: COLORECTAL CANCER METASTATIC
     Route: 041
     Dates: start: 20141110
  5. IRINOTECAN LIPOSOME [Suspect]
     Active Substance: IRINOTECAN
     Indication: COLORECTAL CANCER METASTATIC
     Dosage: 360 MG
     Route: 041
     Dates: start: 20141110
  6. KALII CHLORIDUM [Concomitant]
     Dates: start: 20141120
  7. QUAMATEL [Concomitant]
     Active Substance: FAMOTIDINE
     Dates: start: 20141110, end: 20141208
  8. APAURIN [Concomitant]
     Active Substance: DIAZEPAM
  9. ZOLSANA [Concomitant]
     Dates: start: 201403
  10. ATROPIN [Concomitant]
     Active Substance: ATROPINE
     Dates: start: 20141110, end: 20141208
  11. 5-FU [Suspect]
     Active Substance: FLUOROURACIL
     Indication: COLORECTAL CANCER METASTATIC
     Route: 040
     Dates: start: 20141110

REACTIONS (3)
  - Off label use [Unknown]
  - Hypertension [Recovered/Resolved]
  - Neutropenia [Recovered/Resolved]

NARRATIVE: CASE EVENT DATE: 20141124
